FAERS Safety Report 9149059 (Version 1)
Quarter: 2013Q1

REPORT INFORMATION
  Report Type: Spontaneous
  Country: FR (occurrence: None)
  Receive Date: 20130304
  Receipt Date: 20130304
  Transmission Date: 20140127
  Serious: Yes (Death, Hospitalization)
  Sender: FDA-Public Use
  Company Number: 2013CP000013

PATIENT
  Age: 86 Year
  Sex: Female

DRUGS (4)
  1. PERFALGAN [Suspect]
     Dosage: 1 DAY
     Route: 042
     Dates: start: 20121001
  2. CALCIPARINE [Suspect]
     Indication: PROPHYLAXIS
     Dosage: 2/1 DAY
     Route: 058
     Dates: start: 20121002, end: 20121026
  3. TOPLEXIL [Suspect]
     Route: 048
     Dates: start: 20121011
  4. VANCOMYCIN [Suspect]
     Dosage: 1/1 DAY IV
     Route: 042
     Dates: start: 20121002, end: 20121022

REACTIONS (1)
  - Thrombocytopenia [None]
